FAERS Safety Report 5607388-4 (Version None)
Quarter: 2008Q1

REPORT INFORMATION
  Report Type: 
  Country: None (occurrence: None)
  Receive Date: 20080128
  Receipt Date: 20080128
  Transmission Date: 20080703
  Serious: Yes (Hospitalization)
  Sender: FDA-Public Use
  Company Number: None

PATIENT
  Age: 81 Year
  Sex: Male
  Weight: 106.1 kg

DRUGS (2)
  1. DOXAZOSIN MESYLATE [Suspect]
     Indication: HYPERTENSION
     Dosage: 4MG HS PO
     Route: 048
     Dates: start: 20080108
  2. LISINOPRIL [Suspect]
     Dosage: 40MG EVERY DAY PO
     Route: 048
     Dates: start: 20060208

REACTIONS (1)
  - HYPOTENSION [None]
